FAERS Safety Report 24960517 (Version 1)
Quarter: 2025Q1

REPORT INFORMATION
  Report Type: Spontaneous
  Country: DE (occurrence: DE)
  Receive Date: 20250212
  Receipt Date: 20250212
  Transmission Date: 20250408
  Serious: Yes (Other)
  Sender: ANI
  Company Number: DE-ANIPHARMA-2018-DE-000178

PATIENT
  Sex: Female
  Weight: 120 kg

DRUGS (2)
  1. ANASTROZOLE [Suspect]
     Active Substance: ANASTROZOLE
     Indication: Breast cancer metastatic
     Route: 048
     Dates: start: 20180721
  2. RIBOCICLIB [Suspect]
     Active Substance: RIBOCICLIB
     Route: 048
     Dates: start: 20180724

REACTIONS (7)
  - Herpes zoster [Recovering/Resolving]
  - Leukopenia [Unknown]
  - Neutropenia [Unknown]
  - Pain [Unknown]
  - Weight decreased [Unknown]
  - Hypertension [Unknown]
  - Anaemia [Not Recovered/Not Resolved]

NARRATIVE: CASE EVENT DATE: 20181002
